FAERS Safety Report 20455267 (Version 4)
Quarter: 2022Q2

REPORT INFORMATION
  Report Type: Report from Study
  Country: DE (occurrence: DE)
  Receive Date: 20220210
  Receipt Date: 20220623
  Transmission Date: 20220721
  Serious: Yes (Hospitalization, Other)
  Sender: FDA-Public Use
  Company Number: DE-SHIRE-DE202020429

PATIENT
  Age: 61 Year
  Sex: Male
  Weight: 61 kg

DRUGS (10)
  1. TEDUGLUTIDE [Suspect]
     Active Substance: TEDUGLUTIDE
     Indication: Short-bowel syndrome
     Dosage: 3.1 MILLIGRAM, QD
     Route: 042
     Dates: start: 20170504, end: 20200729
  2. TEDUGLUTIDE [Suspect]
     Active Substance: TEDUGLUTIDE
     Indication: Short-bowel syndrome
     Dosage: 3.1 MILLIGRAM, QD
     Route: 042
     Dates: start: 20170504, end: 20200729
  3. TEDUGLUTIDE [Suspect]
     Active Substance: TEDUGLUTIDE
     Indication: Short-bowel syndrome
     Dosage: 3.1 MILLIGRAM, QD
     Route: 042
     Dates: start: 20170504, end: 20200729
  4. TEDUGLUTIDE [Suspect]
     Active Substance: TEDUGLUTIDE
     Indication: Short-bowel syndrome
     Dosage: 3.1 MILLIGRAM, QD
     Route: 042
     Dates: start: 20170504, end: 20200729
  5. AMPHOTERICIN B [Concomitant]
     Active Substance: AMPHOTERICIN B
     Indication: Oesophageal candidiasis
     Dosage: UNK
     Route: 065
  6. DERMOXIN [CLOBETASOL PROPIONATE] [Concomitant]
     Indication: Pemphigoid
     Dosage: UNK
     Route: 065
  7. IRON [Concomitant]
     Active Substance: IRON
     Indication: Normochromic normocytic anaemia
     Dosage: UNK
     Route: 042
     Dates: start: 202007, end: 202008
  8. FOLIC ACID [Concomitant]
     Active Substance: FOLIC ACID
     Indication: Normochromic normocytic anaemia
     Dosage: UNK
     Route: 048
     Dates: start: 202007, end: 202008
  9. DOXYCYCLINE [Concomitant]
     Active Substance: DOXYCYCLINE
     Indication: Pemphigoid
     Dosage: 200 MILLIGRAM, QD
     Route: 048
     Dates: start: 20200615
  10. CEFEPIME HYDROCHLORIDE [Concomitant]
     Active Substance: CEFEPIME HYDROCHLORIDE
     Indication: Device related sepsis
     Dosage: 2.38 GRAM, TID
     Route: 048
     Dates: start: 20200623, end: 20200804

REACTIONS (8)
  - Pyrexia [Recovered/Resolved]
  - Cerebrovascular accident [Recovered/Resolved]
  - Device related sepsis [Recovered/Resolved]
  - Acute coronary syndrome [Recovered/Resolved]
  - Oesophageal candidiasis [Not Recovered/Not Resolved]
  - Chronic kidney disease [Not Recovered/Not Resolved]
  - Normochromic normocytic anaemia [Not Recovered/Not Resolved]
  - Hyponatraemia [Recovered/Resolved]

NARRATIVE: CASE EVENT DATE: 20200601
